FAERS Safety Report 17396172 (Version 3)
Quarter: 2020Q3

REPORT INFORMATION
  Report Type: Spontaneous
  Country: US (occurrence: US)
  Receive Date: 20200210
  Receipt Date: 20200730
  Transmission Date: 20201102
  Serious: Yes (Other)
  Sender: FDA-Public Use
  Company Number: US-PFIZER INC-2020046912

PATIENT
  Age: 39 Year
  Sex: Female

DRUGS (7)
  1. EMEND [Suspect]
     Active Substance: APREPITANT
     Dosage: 20 ML, UNK (ABOUT 20ML (10MG) INFUSED)
  2. POLYSORBATE 80. [Suspect]
     Active Substance: POLYSORBATE 80
     Dosage: UNK
  3. DOXORUBICIN [Concomitant]
     Active Substance: DOXORUBICIN
     Indication: BREAST CANCER
     Dosage: UNK, CYCLIC (COMPLETED FOUR CYCLES)
  4. CYCLOPHOSPHAMIDE. [Concomitant]
     Active Substance: CYCLOPHOSPHAMIDE
     Indication: BREAST CANCER
     Dosage: UNK, CYCLIC (COMPLETED FOUR CYCLES)
  5. DIPHENHYDRAMINE. [Concomitant]
     Active Substance: DIPHENHYDRAMINE
     Indication: PREMEDICATION
     Dosage: 25 MG, UNK
  6. PACLITAXEL. [Suspect]
     Active Substance: PACLITAXEL
     Indication: BREAST CANCER
     Dosage: 1 MG, TEST DOSE
     Route: 042
  7. CREMOPHOR EL [Suspect]
     Active Substance: POLYOXYL 35 CASTOR OIL
     Dosage: UNK

REACTIONS (2)
  - Therapeutic product cross-reactivity [Unknown]
  - Allergic reaction to excipient [Recovered/Resolved]
